FAERS Safety Report 11987696 (Version 1)
Quarter: 2016Q1

REPORT INFORMATION
  Report Type: Report from Study
  Country: TR (occurrence: TR)
  Receive Date: 20160202
  Receipt Date: 20160202
  Transmission Date: 20160526
  Serious: Yes (Death, Other)
  Sender: FDA-Public Use
  Company Number: TR-ACCORD-037412

PATIENT
  Age: 5 Year
  Sex: Female

DRUGS (10)
  1. ACICLOVIR [Concomitant]
     Active Substance: ACYCLOVIR
     Indication: PROPHYLAXIS
  2. CICLOSPORIN [Suspect]
     Active Substance: CYCLOSPORINE
     Indication: PROPHYLAXIS AGAINST GRAFT VERSUS HOST DISEASE
     Dosage: FROM DAY 1
     Route: 042
  3. MESNA. [Concomitant]
     Active Substance: MESNA
     Dosage: ADMINISTERED FROM DAY THREE TO SEVEN POST-HSCT
  4. CYCLOPHOSPHAMIDE/CYCLOPHOSPHAMIDE MONOHYDRATE [Suspect]
     Active Substance: CYCLOPHOSPHAMIDE
     Indication: PROPHYLAXIS AGAINST GRAFT VERSUS HOST DISEASE
     Dosage: GIVEN ON DAYS THREE AND?FIVE POST-HSCT
     Route: 042
  5. FLUCONAZOLE. [Concomitant]
     Active Substance: FLUCONAZOLE
     Indication: PROPHYLAXIS
  6. SULFAMETHOXAZOLE/TRIMETHOPRIM [Concomitant]
     Indication: PROPHYLAXIS
  7. MYCOPHENOLIC ACID. [Suspect]
     Active Substance: MYCOPHENOLIC ACID
     Indication: PROPHYLAXIS AGAINST GRAFT VERSUS HOST DISEASE
     Route: 048
  8. BUSULFAN [Concomitant]
     Active Substance: BUSULFAN
  9. MELPHALAN [Concomitant]
     Active Substance: MELPHALAN
  10. NO DRUG NAME [Concomitant]
     Indication: PROPHYLAXIS

REACTIONS (2)
  - Acute graft versus host disease [Recovered/Resolved]
  - Ewing^s sarcoma recurrent [Fatal]
